FAERS Safety Report 4661881-X (Version None)
Quarter: 2005Q2

REPORT INFORMATION
  Report Type: 
  Country: None (occurrence: None)
  Receive Date: 20050513
  Receipt Date: 20011025
  Transmission Date: 20051028
  Serious: Yes (Hospitalization)
  Sender: FDA-Public Use
  Company Number: US-MERCK-01104513

PATIENT
  Age: 86 Year
  Sex: Female
  Weight: 55 kg

DRUGS (20)
  1. VIOXX [Suspect]
     Indication: OSTEOPOROSIS
     Route: 048
     Dates: start: 19990801, end: 20010101
  2. VIOXX [Suspect]
     Indication: OSTEOARTHRITIS
     Route: 048
     Dates: start: 19990801, end: 20010101
  3. SYNTHROID [Concomitant]
     Indication: THYROID DISORDER
     Route: 065
     Dates: start: 19750101
  4. SYNTHROID [Concomitant]
     Route: 048
     Dates: start: 20021220, end: 20030822
  5. PREMARIN [Concomitant]
     Route: 065
     Dates: start: 19400101, end: 19990101
  6. ALLEGRA [Concomitant]
     Route: 048
     Dates: start: 20021220
  7. DETROL [Concomitant]
     Route: 048
     Dates: start: 20021220
  8. ACIPHEX [Concomitant]
     Route: 048
     Dates: start: 20021220
  9. AZITHROMYCIN [Concomitant]
     Indication: COUGH
     Route: 048
     Dates: start: 20030204, end: 20030228
  10. CELEXA [Concomitant]
     Route: 065
  11. NORTRIPTYLINE [Concomitant]
     Route: 065
  12. FOSAMAX [Concomitant]
     Route: 048
     Dates: start: 20030103
  13. TUSSIONEX [Concomitant]
     Route: 048
     Dates: start: 20020226
  14. ATENOLOL [Concomitant]
     Route: 048
     Dates: start: 20010701
  15. ASPIRIN [Concomitant]
     Route: 048
  16. CALCIUM (UNSPECIFIED) [Concomitant]
     Route: 065
  17. VITAMIN D (UNSPECIFIED) [Concomitant]
     Route: 065
  18. QUESTRAN [Concomitant]
     Route: 065
  19. IBUPROFEN [Concomitant]
     Route: 065
  20. ALEVE [Concomitant]
     Route: 065

REACTIONS (33)
  - ATRIAL FIBRILLATION [None]
  - BACK PAIN [None]
  - BARRETT'S OESOPHAGUS [None]
  - BLOOD CHOLESTEROL INCREASED [None]
  - CARDIAC MURMUR [None]
  - CYSTITIS [None]
  - DEPRESSION [None]
  - DIARRHOEA [None]
  - DIVERTICULUM [None]
  - DRUG INEFFECTIVE [None]
  - DYSPEPSIA [None]
  - EMOTIONAL DISTRESS [None]
  - GASTRITIS [None]
  - HEADACHE [None]
  - HERPES ZOSTER [None]
  - HIATUS HERNIA [None]
  - HYPERTENSION [None]
  - HYPOTHYROIDISM [None]
  - LIMB INJURY [None]
  - MITRAL VALVE PROLAPSE [None]
  - MUSCLE SPASMS [None]
  - NECK PAIN [None]
  - PALPITATIONS [None]
  - PNEUMONIA [None]
  - RHINITIS ALLERGIC [None]
  - ROAD TRAFFIC ACCIDENT [None]
  - ROTATOR CUFF SYNDROME [None]
  - SEASONAL ALLERGY [None]
  - SHOULDER PAIN [None]
  - SLEEP DISORDER [None]
  - URETHRITIS [None]
  - VIRAL INFECTION [None]
  - XANTHELASMA [None]
